FAERS Safety Report 10057282 (Version 3)
Quarter: 2014Q2

REPORT INFORMATION
  Report Type: Spontaneous
  Country: US (occurrence: US)
  Receive Date: 20140403
  Receipt Date: 20140418
  Transmission Date: 20141212
  Serious: Yes (Hospitalization)
  Sender: FDA-Public Use
  Company Number: US-MERCK-1403USA002441

PATIENT
  Age: 57 Year
  Sex: Female

DRUGS (5)
  1. PEGINTRON [Suspect]
     Indication: HEPATITIS C
     Dosage: REDIPEN 150 MICROGRAM/ONCE A WEEK, INJECTION (UNSPECIFIED)
     Dates: start: 201307
  2. VICTRELIS [Suspect]
     Dosage: UNK
     Route: 048
     Dates: end: 20140324
  3. RIBASPHERE [Suspect]
     Dosage: UNK
  4. PROZAC [Concomitant]
  5. PRILOSEC OTC [Concomitant]

REACTIONS (9)
  - Dehydration [Recovering/Resolving]
  - Wrong technique in drug usage process [Unknown]
  - Underdose [Unknown]
  - Headache [Recovering/Resolving]
  - Vomiting [Recovering/Resolving]
  - Pain [Not Recovered/Not Resolved]
  - Malaise [Unknown]
  - Retching [Unknown]
  - Drug dose omission [Unknown]
